FAERS Safety Report 8259068 (Version 2)
Quarter: 2012Q4

REPORT INFORMATION
  Report Type: 
  Country: CZ (occurrence: CZ)
  Receive Date: 20111122
  Receipt Date: 20121227
  Transmission Date: 20130627
  Serious: Yes (Other)
  Sender: FDA-Public Use
  Company Number: CZ-CELGENEUS-217-20785-11111272

PATIENT
  Age: 46 Year
  Sex: Male

DRUGS (8)
  1. THALIDOMIDE [Suspect]
     Indication: CASTLEMAN^S DISEASE
     Route: 048
     Dates: start: 200903, end: 201001
  2. THALIDOMIDE [Suspect]
     Route: 048
     Dates: start: 201004
  3. THALIDOMIDE [Suspect]
     Route: 048
  4. DEXAMETHAZONE [Suspect]
     Indication: CASTLEMAN^S DISEASE
     Route: 048
     Dates: start: 200903, end: 201001
  5. DEXAMETHAZONE [Suspect]
     Route: 065
     Dates: start: 201004
  6. CYCLOPHOSPHAMIDE [Suspect]
     Indication: CASTLEMAN^S DISEASE
     Route: 048
     Dates: start: 200903, end: 201001
  7. CYCLOPHOSPHAMIDE [Suspect]
     Route: 065
     Dates: start: 201004
  8. TOCILIZUMAB [Concomitant]
     Indication: DRUG USE FOR UNKNOWN INDICATION
     Route: 041
     Dates: start: 201001

REACTIONS (5)
  - Cushing^s syndrome [Unknown]
  - Neuropathy peripheral [Unknown]
  - Diabetes mellitus [None]
  - General physical health deterioration [None]
  - Oedema peripheral [None]
